FAERS Safety Report 9527912 (Version 1)
Quarter: 2013Q1

REPORT INFORMATION
  Report Type: Spontaneous
  Country: US (occurrence: None)
  Receive Date: 20130313
  Receipt Date: 20130313
  Transmission Date: 20140127
  Serious: Yes (Other)
  Sender: FDA-Public Use
  Company Number: 1000038262

PATIENT
  Age: 68 Year
  Sex: Female

DRUGS (11)
  1. SAVELLA [Suspect]
     Indication: FIBROMYALGIA
     Route: 048
     Dates: start: 201203, end: 2012
  2. LISINOPRIL (LISINOPRIL) (LISINOPRIL) [Concomitant]
  3. METFORMIN (METFORMIN) (METFORMIN) [Concomitant]
  4. LOVASTATIN (LOVASTATIN) (LOVASTATINE) [Concomitant]
  5. BUMEX (BUMETANIDE) (BUMETANIDE) [Concomitant]
  6. OMEPRAZOLE (OMEPRAZOLE) (OMEPRAZOLE) [Concomitant]
  7. ADVAIR (SERETIDE) (SERETIDE) [Concomitant]
  8. PROVENTIL (ALBUTEROL) (ALBUTEROL) [Concomitant]
  9. EFFEXOR (VENLAFAXINE HYDROCHLORIDE) (VENLAFAXINE HYDROCHLORIDE) [Concomitant]
  10. FEXOFENADINE (FEXOFENADINE) (FEXOFENADINE) [Concomitant]
  11. CALCIUM (CALCIUM) (CALCIUM) [Concomitant]

REACTIONS (7)
  - Fall [None]
  - Haematoma [None]
  - Joint swelling [None]
  - Contusion [None]
  - Ecchymosis [None]
  - Arthralgia [None]
  - Pyrexia [None]
